FAERS Safety Report 4678002-X (Version None)
Quarter: 2005Q2

REPORT INFORMATION
  Report Type: 
  Country: None (occurrence: None)
  Receive Date: 20050531
  Receipt Date: 20050407
  Transmission Date: 20051028
  Serious: Yes (Death)
  Sender: FDA-Public Use
  Company Number: 2005UW05526

PATIENT
  Age: 72 Year
  Sex: Male

DRUGS (6)
  1. SEROQUEL [Suspect]
     Route: 048
  2. BENADRYL [Concomitant]
  3. NIFEDIPINE [Concomitant]
  4. CELEBREX [Concomitant]
  5. LORAZEPAM [Concomitant]
  6. TORADOL [Concomitant]

REACTIONS (3)
  - FIBROMYALGIA [None]
  - MYALGIA [None]
  - RENAL FAILURE [None]
